FAERS Safety Report 21905026 (Version 2)
Quarter: 2023Q1

REPORT INFORMATION
  Report Type: Spontaneous
  Country: CN (occurrence: CN)
  Receive Date: 20230124
  Receipt Date: 20230131
  Transmission Date: 20230417
  Serious: Yes (Other)
  Sender: FDA-Public Use
  Company Number: CN-MLMSERVICE-20230113-4040165-1

PATIENT
  Age: 76 Year
  Sex: Female

DRUGS (8)
  1. EXEMESTANE [Suspect]
     Active Substance: EXEMESTANE
     Indication: Metastases to pleura
     Dosage: 25MG, QD
     Dates: start: 202209
  2. EXEMESTANE [Suspect]
     Active Substance: EXEMESTANE
     Indication: Metastases to lung
  3. DALPICICLIB [Suspect]
     Active Substance: DALPICICLIB
     Indication: Metastases to pleura
     Dosage: 125MG, QD, 3 WEEKS ON/1 WEEK OFF
     Dates: start: 202209
  4. DALPICICLIB [Suspect]
     Active Substance: DALPICICLIB
     Indication: Metastases to lung
  5. FULVESTRANT [Suspect]
     Active Substance: FULVESTRANT
     Indication: Metastases to pleura
     Dosage: 500MG, IM, Q4W
     Route: 030
     Dates: start: 202209
  6. FULVESTRANT [Suspect]
     Active Substance: FULVESTRANT
     Indication: Metastases to lung
  7. CHOLECALCIFEROL [Concomitant]
     Active Substance: CHOLECALCIFEROL
     Indication: Osteoporosis
     Dosage: UNK
     Dates: start: 202008
  8. TAMOXIFEN [Concomitant]
     Active Substance: TAMOXIFEN
     Indication: Osteoporosis
     Dosage: UNK
     Dates: start: 2017

REACTIONS (1)
  - Neutropenia [Unknown]

NARRATIVE: CASE EVENT DATE: 20220101
